FAERS Safety Report 8304497-6 (Version None)
Quarter: 2012Q2

REPORT INFORMATION
  Report Type: 
  Country: None (occurrence: None)
  Receive Date: 20120423
  Receipt Date: 20120417
  Transmission Date: 20120825
  Serious: Yes (Other)
  Sender: FDA-Public Use
  Company Number: JP-PFIZER INC-2012037116

PATIENT
  Age: 60 Year
  Sex: Male

DRUGS (4)
  1. LIPITOR [Suspect]
     Dosage: 10 MG, UNK
     Route: 048
     Dates: start: 20061001, end: 20120314
  2. URINORM [Concomitant]
     Dosage: UNK
     Route: 048
  3. CLARITIN [Concomitant]
     Dosage: UNK
     Route: 048
  4. ASPIRIN [Concomitant]
     Dosage: UNK
     Route: 048

REACTIONS (1)
  - BLOOD THYROID STIMULATING HORMONE INCREASED [None]
